FAERS Safety Report 10094193 (Version 1)
Quarter: 2014Q2

REPORT INFORMATION
  Report Type: Spontaneous
  Country: US (occurrence: None)
  Receive Date: 20140418
  Receipt Date: 20140418
  Transmission Date: 20141212
  Serious: Yes (Hospitalization)
  Sender: FDA-Public Use
  Company Number: 001709773A

PATIENT
  Age: 53 Year
  Sex: Female

DRUGS (2)
  1. VITACLEAR [Suspect]
     Indication: ACNE
     Dates: start: 20140319, end: 20140320
  2. PROACTIV + PRODUCTS [Concomitant]

REACTIONS (3)
  - Erythema [None]
  - Swollen tongue [None]
  - Throat tightness [None]
